FAERS Safety Report 4522477-3 (Version None)
Quarter: 2004Q4

REPORT INFORMATION
  Report Type: 
  Country: None (occurrence: None)
  Receive Date: 20041207
  Receipt Date: 20041122
  Transmission Date: 20050328
  Serious: Yes (Hospitalization)
  Sender: FDA-Public Use
  Company Number: US_0411108149

PATIENT
  Age: 16 Year
  Sex: Male

DRUGS (1)
  1. CYMBALTA [Suspect]
     Indication: DEPRESSION
     Dosage: 30 MG DAY

REACTIONS (4)
  - BLOOD GLUCOSE INCREASED [None]
  - DEPRESSION [None]
  - DRUG ABUSER [None]
  - GLUCOSE URINE PRESENT [None]
